FAERS Safety Report 7157630 (Version 7)
Quarter: 2014Q4

REPORT INFORMATION
  Report Type: Report from Study
  Country: JP (occurrence: JP)
  Receive Date: 20091026
  Receipt Date: 20141125
  Transmission Date: 20150529
  Serious: Yes (Death, Hospitalization, Other)
  Sender: FDA-Public Use
  Company Number: PHHY2009JP38286

PATIENT
  Age: 72 Year
  Sex: Male
  Weight: 63 kg

DRUGS (5)
  1. AMN107 [Suspect]
     Active Substance: NILOTINIB
     Indication: CHRONIC MYELOID LEUKAEMIA
     Dosage: 800 MG, QD
     Route: 048
     Dates: start: 20090715, end: 201011
  2. MYCOSYST [Concomitant]
     Active Substance: FLUCONAZOLE
     Indication: TINEA INFECTION
     Dosage: 100 MG, UNK
     Route: 048
     Dates: start: 20090721, end: 20090818
  3. HARNAL [Concomitant]
     Active Substance: TAMSULOSIN HYDROCHLORIDE
     Indication: BENIGN PROSTATIC HYPERPLASIA
     Dosage: 0.4 MG, UNK
     Route: 048
     Dates: start: 2000
  4. SPRYCEL [Suspect]
     Active Substance: DASATINIB
     Indication: PRODUCT USED FOR UNKNOWN INDICATION
     Route: 065
  5. ISODINE [Concomitant]
     Active Substance: POVIDONE-IODINE
     Indication: PROPHYLAXIS
     Route: 048
     Dates: start: 20071216

REACTIONS (8)
  - Chronic myeloid leukaemia [Not Recovered/Not Resolved]
  - Drug ineffective [Unknown]
  - Gamma-glutamyltransferase increased [Not Recovered/Not Resolved]
  - Death [Fatal]
  - Malignant neoplasm progression [Not Recovered/Not Resolved]
  - Gene mutation identification test positive [Unknown]
  - Tinea pedis [Recovered/Resolved]
  - Rash [Unknown]

NARRATIVE: CASE EVENT DATE: 20090718
